FAERS Safety Report 23843104 (Version 1)
Quarter: 2024Q2

REPORT INFORMATION
  Report Type: Spontaneous
  Country: US (occurrence: None)
  Receive Date: 20240509
  Receipt Date: 20240509
  Transmission Date: 20240715
  Serious: Yes (Hospitalization)
  Sender: FDA-Public Use
  Company Number: None

PATIENT
  Age: 19 Year
  Sex: Female
  Weight: 95.94 kg

DRUGS (2)
  1. ZEPBOUND [Suspect]
     Active Substance: TIRZEPATIDE
  2. Zepound 2.5mg [Concomitant]
     Dates: start: 20240401, end: 20240430

REACTIONS (6)
  - Gastrointestinal disorder [None]
  - Nausea [None]
  - Vomiting [None]
  - Malaise [None]
  - Abdominal pain [None]
  - Colitis [None]

NARRATIVE: CASE EVENT DATE: 20240422
